FAERS Safety Report 17419129 (Version 1)
Quarter: 2020Q1

REPORT INFORMATION
  Report Type: Spontaneous
  Country: US (occurrence: US)
  Receive Date: 20200214
  Receipt Date: 20200214
  Transmission Date: 20200409
  Serious: Yes (Other)
  Sender: FDA-Public Use
  Company Number: US-JNJFOC-20200210776

PATIENT
  Age: 19 Year
  Sex: Male

DRUGS (1)
  1. SPRAVATO [Suspect]
     Active Substance: ESKETAMINE
     Indication: DEPRESSION
     Dates: start: 202001, end: 202001

REACTIONS (9)
  - Suicidal ideation [Recovered/Resolved]
  - Mood altered [Not Recovered/Not Resolved]
  - Product administration error [Recovered/Resolved]
  - Product dose omission [Recovered/Resolved]
  - Feeling abnormal [Recovered/Resolved]
  - Logorrhoea [Unknown]
  - Depression [Recovered/Resolved]
  - Drug ineffective [Recovered/Resolved]
  - Drug monitoring procedure incorrectly performed [Recovered/Resolved]

NARRATIVE: CASE EVENT DATE: 202001
